FAERS Safety Report 13506992 (Version 1)
Quarter: 2017Q2

REPORT INFORMATION
  Report Type: Report from Study
  Country: US (occurrence: US)
  Receive Date: 20170503
  Receipt Date: 20170503
  Transmission Date: 20170830
  Serious: Yes (Hospitalization, Other)
  Sender: FDA-Public Use
  Company Number: US-TORRENT-00002712

PATIENT
  Age: 53 Year
  Sex: Male

DRUGS (5)
  1. VANCOMYCIN [Suspect]
     Active Substance: VANCOMYCIN
  2. LOSARTAN. [Suspect]
     Active Substance: LOSARTAN
  3. PIPERACILLIN/TAZOBACTAM [Suspect]
     Active Substance: PIPERACILLIN SODIUM\TAZOBACTAM SODIUM
  4. IBUPROFEN. [Suspect]
     Active Substance: IBUPROFEN
  5. ERTAPENEM [Concomitant]
     Active Substance: ERTAPENEM

REACTIONS (3)
  - Renal tubular necrosis [Recovered/Resolved]
  - Acute kidney injury [Recovered/Resolved]
  - Nephropathy toxic [Recovered/Resolved]
